FAERS Safety Report 8001613-0 (Version None)
Quarter: 2011Q4

REPORT INFORMATION
  Report Type: 
  Country: None (occurrence: None)
  Receive Date: 20111222
  Receipt Date: 20111207
  Transmission Date: 20120403
  Serious: Yes (Death, Other)
  Sender: FDA-Public Use
  Company Number: IT-ROCHE-1021168

PATIENT
  Sex: Male

DRUGS (9)
  1. VINCRISTINE [Suspect]
     Indication: BURKITT'S LYMPHOMA
     Route: 065
  2. DOXORUBICIN HCL [Suspect]
     Indication: BURKITT'S LYMPHOMA
     Route: 065
  3. METHYLPREDNISOLONE [Suspect]
     Indication: BURKITT'S LYMPHOMA
     Route: 065
  4. CYCLOPHOSPHAMIDE [Suspect]
     Indication: BURKITT'S LYMPHOMA
     Route: 065
  5. ETOPOSIDE [Suspect]
     Indication: BURKITT'S LYMPHOMA
     Route: 065
  6. CISPLATIN [Suspect]
     Indication: BURKITT'S LYMPHOMA
     Route: 065
  7. DOXORUBICIN HYDROCHLORIDE [Suspect]
     Indication: BURKITT'S LYMPHOMA
     Route: 065
  8. METHOTREXATE [Suspect]
     Indication: BURKITT'S LYMPHOMA
     Route: 065
  9. MABTHERA [Suspect]
     Indication: BURKITT'S LYMPHOMA
     Route: 065

REACTIONS (8)
  - EPSTEIN-BARR VIRUS INFECTION [None]
  - DIARRHOEA [None]
  - NEUTROPENIA [None]
  - ANAEMIA [None]
  - SEPSIS [None]
  - THROMBOCYTOPENIA [None]
  - INFECTION [None]
  - CYTOMEGALOVIRUS INFECTION [None]
